FAERS Safety Report 14588716 (Version 1)
Quarter: 2018Q1

REPORT INFORMATION
  Report Type: Spontaneous
  Country: ES (occurrence: ES)
  Receive Date: 20180301
  Receipt Date: 20180301
  Transmission Date: 20180509
  Serious: Yes (Life-Threatening, Hospitalization, Other)
  Sender: FDA-Public Use
  Company Number: ES-IMPAX LABORATORIES, INC-2018-IPXL-00584

PATIENT
  Age: 45 Year
  Sex: Male

DRUGS (6)
  1. CHLOROQUINE PHOSPHATE. [Suspect]
     Active Substance: CHLOROQUINE PHOSPHATE
     Dosage: 450 MG, DAILY (DAY 3)
     Route: 065
  2. CHLOROQUINE PHOSPHATE. [Suspect]
     Active Substance: CHLOROQUINE PHOSPHATE
     Indication: PLASMODIUM VIVAX INFECTION
     Dosage: 600 MG, DAILY (DAY 1)
     Route: 065
  3. CHLOROQUINE PHOSPHATE. [Suspect]
     Active Substance: CHLOROQUINE PHOSPHATE
     Dosage: UNK
     Route: 065
  4. CHLOROQUINE PHOSPHATE. [Suspect]
     Active Substance: CHLOROQUINE PHOSPHATE
     Dosage: 450 MG, DAILY (DAY 2)
     Route: 065
  5. PRIMAQUINE [Suspect]
     Active Substance: PRIMAQUINE PHOSPHATE
     Dosage: UNK
     Route: 065
  6. PRIMAQUINE [Suspect]
     Active Substance: PRIMAQUINE PHOSPHATE
     Indication: PLASMODIUM VIVAX INFECTION
     Dosage: 30 MG, DAILY, FOR 8 DAYS
     Route: 065

REACTIONS (4)
  - Thrombocytopenia [Recovered/Resolved]
  - Plasmodium vivax infection [Unknown]
  - Splenic rupture [Recovered/Resolved]
  - Anaemia [Recovered/Resolved]
